FAERS Safety Report 25318784 (Version 1)
Quarter: 2025Q2

REPORT INFORMATION
  Report Type: Spontaneous
  Country: US (occurrence: None)
  Receive Date: 20250514
  Receipt Date: 20250514
  Transmission Date: 20250717
  Serious: Yes (Other)
  Sender: FDA-CTU
  Company Number: None

PATIENT
  Age: 68 Year
  Sex: Female
  Weight: 63.6 kg

DRUGS (6)
  1. INFED [Suspect]
     Active Substance: IRON DEXTRAN
     Indication: Iron deficiency anaemia
     Route: 042
     Dates: start: 20250509, end: 20250509
  2. Vitamin B-12 1,000 mcg SQ every 4 weeks [Concomitant]
  3. Folic Acid 1 mg PO daily [Concomitant]
  4. Gabapentin 100 mg PO daily [Concomitant]
  5. Imatinib 500 mg PO daily [Concomitant]
  6. Potassium Citrate 15 mEq PO TID [Concomitant]

REACTIONS (4)
  - Infusion related reaction [None]
  - Back pain [None]
  - Dizziness [None]
  - Hypotension [None]

NARRATIVE: CASE EVENT DATE: 20250509
